FAERS Safety Report 6166399-3 (Version None)
Quarter: 2009Q2

REPORT INFORMATION
  Report Type: 
  Country: None (occurrence: None)
  Receive Date: 20090422
  Receipt Date: 20090422
  Transmission Date: 20091009
  Serious: Yes (Death)
  Sender: FDA-Public Use
  Company Number: None

PATIENT
  Sex: Female

DRUGS (7)
  1. REVLIMID [Suspect]
     Indication: MULTIPLE MYELOMA
     Dosage: 5MG EVERY OTHER DAY ORALLY
     Route: 048
     Dates: start: 20071117, end: 20080801
  2. LACTULOSE [Concomitant]
  3. ASPIRIN [Concomitant]
  4. FUROSEMIDE [Concomitant]
  5. K-TAB [Concomitant]
  6. AMITRIPTLINE HYDROCHLORIDE TAB [Concomitant]
  7. TEMAZEPAM [Concomitant]

REACTIONS (4)
  - BONE NEOPLASM MALIGNANT [None]
  - DISEASE PROGRESSION [None]
  - LIVER FUNCTION TEST ABNORMAL [None]
  - MULTIPLE MYELOMA [None]
